FAERS Safety Report 12663494 (Version 1)
Quarter: 2016Q3

REPORT INFORMATION
  Report Type: Spontaneous
  Country: US (occurrence: None)
  Receive Date: 20160817
  Receipt Date: 20160817
  Transmission Date: 20161109
  Serious: No
  Sender: FDA-Public Use
  Company Number: None

PATIENT
  Age: 56 Year
  Sex: Male
  Weight: 118.2 kg

DRUGS (3)
  1. MEDTRONIC ACT [Concomitant]
  2. MEDTRONIC ACT PLUS [Concomitant]
  3. HEPARIN SODIUM INJ 10,000 USP / 10 ML FRESENIUS KAB I [Suspect]
     Active Substance: HEPARIN SODIUM
     Indication: CORONARY ARTERIAL STENT INSERTION
     Dosage: 8000 THEN 1000 UNITS ONCE
     Dates: start: 20160804

REACTIONS (1)
  - Therapeutic response decreased [None]

NARRATIVE: CASE EVENT DATE: 20160804
